FAERS Safety Report 22209547 (Version 3)
Quarter: 2023Q2

REPORT INFORMATION
  Report Type: Spontaneous
  Country: FR (occurrence: FR)
  Receive Date: 20230414
  Receipt Date: 20230616
  Transmission Date: 20230721
  Serious: Yes (Other)
  Sender: FDA-Public Use
  Company Number: FR-MLMSERVICE-20230328-4191601-1

PATIENT
  Age: 73 Year
  Sex: Male

DRUGS (4)
  1. CLOXACILLIN [Suspect]
     Active Substance: CLOXACILLIN
     Indication: Staphylococcal bacteraemia
     Dosage: FOR 5 DAYS
     Route: 065
  2. CLOXACILLIN [Suspect]
     Active Substance: CLOXACILLIN
     Indication: Antibiotic therapy
     Dosage: FRESH EXTRACTS FROM INJECTABLE SOLUTION (1 G IN 10 ML OF WATER FOR INJECTION [WFI]) WERE USED
     Route: 065
  3. LEVOFLOXACIN [Suspect]
     Active Substance: LEVOFLOXACIN
     Indication: Staphylococcal bacteraemia
     Dosage: ONCE A DAY
     Route: 065
  4. LEVOFLOXACIN [Suspect]
     Active Substance: LEVOFLOXACIN
     Indication: Antibiotic therapy
     Dosage: TABLET POWDER 30% WAS USED IN WFI AND IN VASELINE
     Route: 065

REACTIONS (6)
  - Duodenitis [Recovering/Resolving]
  - Gastritis [Recovering/Resolving]
  - Drug reaction with eosinophilia and systemic symptoms [Recovering/Resolving]
  - Enteritis [Recovering/Resolving]
  - Duodenal stenosis [Recovering/Resolving]
  - Lung infiltration [Recovering/Resolving]
